FAERS Safety Report 12637410 (Version 1)
Quarter: 2016Q3

REPORT INFORMATION
  Report Type: Spontaneous
  Country: US (occurrence: US)
  Receive Date: 20160809
  Receipt Date: 20160809
  Transmission Date: 20161109
  Serious: No
  Sender: FDA-Public Use
  Company Number: US-BEH-2016061106

PATIENT
  Sex: Female
  Weight: 113 kg

DRUGS (45)
  1. PRIVIGEN [Suspect]
     Active Substance: HUMAN IMMUNOGLOBULIN G
     Indication: HYPOGAMMAGLOBULINAEMIA
     Route: 042
     Dates: start: 20140911
  2. ACETAMINOPHEN. [Concomitant]
     Active Substance: ACETAMINOPHEN
  3. DIPHENHYDRAMINE. [Concomitant]
     Active Substance: DIPHENHYDRAMINE
  4. ZOFRAN [Concomitant]
     Active Substance: ONDANSETRON HYDROCHLORIDE
  5. XYLOCAINE [Concomitant]
     Active Substance: LIDOCAINE HYDROCHLORIDE
  6. TEMOVATE [Concomitant]
     Active Substance: CLOBETASOL PROPIONATE
  7. FLOMAX [Concomitant]
     Active Substance: TAMSULOSIN HYDROCHLORIDE
  8. ASPIRIN. [Concomitant]
     Active Substance: ASPIRIN
  9. BECLOMETHASONE [Concomitant]
     Active Substance: BECLOMETHASONE
  10. DANTRIUM [Concomitant]
     Active Substance: DANTROLENE SODIUM
  11. ALBUTEROL. [Concomitant]
     Active Substance: ALBUTEROL
  12. QVAR [Concomitant]
     Active Substance: BECLOMETHASONE DIPROPIONATE
  13. TYLENOL [Concomitant]
     Active Substance: ACETAMINOPHEN
  14. CYMBALTA [Concomitant]
     Active Substance: DULOXETINE HYDROCHLORIDE
  15. PRAVACHOL [Concomitant]
     Active Substance: PRAVASTATIN SODIUM
  16. FLONASE [Concomitant]
     Active Substance: FLUTICASONE PROPIONATE
  17. KEPPRA [Concomitant]
     Active Substance: LEVETIRACETAM
  18. LEVAQUIN [Concomitant]
     Active Substance: LEVOFLOXACIN
  19. EFFEXOR [Concomitant]
     Active Substance: VENLAFAXINE HYDROCHLORIDE
  20. SAVELLA [Concomitant]
     Active Substance: MILNACIPRAN HYDROCHLORIDE
  21. FOLIC ACID. [Concomitant]
     Active Substance: FOLIC ACID
  22. KLONOPIN [Concomitant]
     Active Substance: CLONAZEPAM
  23. VALIUM [Concomitant]
     Active Substance: DIAZEPAM
  24. PRILOSEC [Concomitant]
     Active Substance: OMEPRAZOLE MAGNESIUM
  25. SENNA [Concomitant]
     Active Substance: SENNA LEAF\SENNOSIDES\SENNOSIDES A AND B
  26. HYDROCHLORTHIAZIDE [Concomitant]
     Active Substance: HYDROCHLOROTHIAZIDE
  27. MIRALAX [Concomitant]
     Active Substance: POLYETHYLENE GLYCOL 3350
  28. CALCIUM [Concomitant]
     Active Substance: CALCIUM
  29. ENBREL [Concomitant]
     Active Substance: ETANERCEPT
  30. NORTRIPTYLINE [Concomitant]
     Active Substance: NORTRIPTYLINE
  31. NORMAL SALINE [Concomitant]
     Active Substance: SODIUM CHLORIDE
  32. SODIUM CHLORIDE. [Concomitant]
     Active Substance: SODIUM CHLORIDE
  33. MULTIVITAMIN [Concomitant]
     Active Substance: VITAMINS
  34. SINGULAIR [Concomitant]
     Active Substance: MONTELUKAST SODIUM
  35. BACLOFEN. [Concomitant]
     Active Substance: BACLOFEN
  36. FISH OIL [Concomitant]
     Active Substance: FISH OIL
  37. PREDNISONE. [Concomitant]
     Active Substance: PREDNISONE
  38. FERROUS SULFATE. [Concomitant]
     Active Substance: FERROUS SULFATE
  39. QVAR [Concomitant]
     Active Substance: BECLOMETHASONE DIPROPIONATE
  40. AMBIEN [Concomitant]
     Active Substance: ZOLPIDEM TARTRATE
  41. LIDOCAINE. [Concomitant]
     Active Substance: LIDOCAINE
  42. PRIVIGEN [Suspect]
     Active Substance: HUMAN IMMUNOGLOBULIN G
     Indication: BEHCET^S SYNDROME
     Route: 042
     Dates: start: 20140911
  43. LMX [Concomitant]
     Active Substance: LIDOCAINE
  44. LEVOTHYROXINE. [Concomitant]
     Active Substance: LEVOTHYROXINE
  45. ERYTHROMYCIN. [Concomitant]
     Active Substance: ERYTHROMYCIN

REACTIONS (1)
  - Sinusitis [Unknown]
